FAERS Safety Report 9642742 (Version 1)
Quarter: 2013Q4

REPORT INFORMATION
  Report Type: Spontaneous
  Country: DE (occurrence: DE)
  Receive Date: 20131024
  Receipt Date: 20131024
  Transmission Date: 20140711
  Serious: Yes (Other)
  Sender: FDA-Public Use
  Company Number: DE-MYLANLABS-2013S1023657

PATIENT
  Age: 28 Year
  Sex: Female
  Weight: 80 kg

DRUGS (4)
  1. PAROXETINE [Suspect]
     Indication: BORDERLINE PERSONALITY DISORDER
     Route: 048
     Dates: start: 20071201, end: 20080802
  2. LAMOTRIGINE [Suspect]
     Indication: BORDERLINE PERSONALITY DISORDER
     Route: 048
     Dates: start: 20071221, end: 20130802
  3. CHLORPROTHIXENE [Concomitant]
     Indication: DEPRESSION
     Route: 048
     Dates: start: 20071221, end: 20080201
  4. FOLIO FORTE [Concomitant]
     Indication: PROPHYLAXIS OF NEURAL TUBE DEFECT
     Route: 048
     Dates: start: 20080126, end: 20080802

REACTIONS (3)
  - Exposure during pregnancy [Unknown]
  - Streptococcal infection [Unknown]
  - Cervical incompetence [Unknown]
